FAERS Safety Report 17512150 (Version 1)
Quarter: 2020Q1

REPORT INFORMATION
  Report Type: Report from Study
  Country: FR (occurrence: FR)
  Receive Date: 20200306
  Receipt Date: 20200306
  Transmission Date: 20200409
  Serious: Yes (Death, Other)
  Sender: FDA-Public Use
  Company Number: FR-JAZZ-2020-FR-003238

PATIENT

DRUGS (19)
  1. DEFITELIO [Suspect]
     Active Substance: DEFIBROTIDE SODIUM
     Dosage: 1 INJECTION 6.2 MILLIGRAM/KILOGRAM/DAY
     Route: 042
     Dates: start: 20190627, end: 20190627
  2. DEFITELIO [Suspect]
     Active Substance: DEFIBROTIDE SODIUM
     Dosage: 1 INJECTION 6.2 MILLIGRAM/KILOGRAM/DAY
     Route: 042
     Dates: start: 20190611, end: 201906
  3. DEFITELIO [Suspect]
     Active Substance: DEFIBROTIDE SODIUM
     Dosage: 3 INJECTIONS 18.6 MILLIGRAM/KILOGRAM/DAY
     Route: 042
     Dates: start: 20190619, end: 20190619
  4. BUSULFAN. [Concomitant]
     Active Substance: BUSULFAN
     Indication: BONE MARROW CONDITIONING REGIMEN
     Dosage: 76.8 MG/KG
  5. METHOTREXATE [METHOTREXATE SODIUM] [Concomitant]
     Active Substance: METHOTREXATE SODIUM
     Indication: PROPHYLAXIS AGAINST GRAFT VERSUS HOST DISEASE
  6. ETOPOSIDE. [Concomitant]
     Active Substance: ETOPOSIDE
     Indication: PRODUCT USED FOR UNKNOWN INDICATION
  7. DEFITELIO [Suspect]
     Active Substance: DEFIBROTIDE SODIUM
     Dosage: 2 INJECTIONS; 12.4 MILLIGRAM/KILOGRAM/DAY
     Route: 042
     Dates: start: 20190610, end: 201906
  8. ENDOXANA [Concomitant]
     Active Substance: CYCLOPHOSPHAMIDE
     Indication: BONE MARROW CONDITIONING REGIMEN
     Dosage: 150 MG/KG
  9. DEFITELIO [Suspect]
     Active Substance: DEFIBROTIDE SODIUM
     Indication: PROPHYLAXIS
     Dosage: 6.2 MILLIGRAM/KILOGRAM/DAY
     Route: 042
     Dates: start: 20190605, end: 201906
  10. DEFITELIO [Suspect]
     Active Substance: DEFIBROTIDE SODIUM
     Dosage: 2 INJECTIONS 12.4 MILLIGRAM/KILOGRAM/DAY
     Route: 042
     Dates: start: 20190614, end: 20190616
  11. DEFITELIO [Suspect]
     Active Substance: DEFIBROTIDE SODIUM
     Dosage: 2 INJECTIONS 12.4 MILLIGRAM/KILOGRAM/DAY
     Route: 042
     Dates: start: 20190622, end: 202006
  12. DEFITELIO [Suspect]
     Active Substance: DEFIBROTIDE SODIUM
     Dosage: 2 INJECTIONS 12.4 MILLIGRAM/KILOGRAM/DAY
     Route: 042
     Dates: start: 20190625, end: 201906
  13. DEFITELIO [Suspect]
     Active Substance: DEFIBROTIDE SODIUM
     Dosage: 4 INJECTIONS 24.8 MILLIGRAM/KILOGRAM/DAY
     Route: 042
     Dates: start: 20190607, end: 201906
  14. DEFITELIO [Suspect]
     Active Substance: DEFIBROTIDE SODIUM
     Dosage: 2 INJECTIONS 12.4 MILLIGRAM/KILOGRAM/DAY
     Route: 042
     Dates: start: 20190620, end: 20190620
  15. DEFITELIO [Suspect]
     Active Substance: DEFIBROTIDE SODIUM
     Dosage: 2 INJECTIONS 12.4 MILLIGRAM/KILOGRAM/DAY
     Route: 042
     Dates: start: 20190630, end: 20190701
  16. DEFITELIO [Suspect]
     Active Substance: DEFIBROTIDE SODIUM
     Dosage: 2 INJECTIONS 12.4 MILLIGRAM/KILOGRAM/DAY
     Route: 042
     Dates: start: 20190628, end: 201906
  17. URSODEOXYCHOLIC ACID [Concomitant]
     Active Substance: URSODIOL
     Indication: PROPHYLAXIS
  18. DEFITELIO [Suspect]
     Active Substance: DEFIBROTIDE SODIUM
     Dosage: 4 INJECTIONS 24.8 MILLIGRAM/KILOGRAM/DAY
     Route: 042
     Dates: start: 20190621, end: 20190621
  19. ARACYTINE [Concomitant]
     Active Substance: CYTARABINE
     Indication: PRODUCT USED FOR UNKNOWN INDICATION

REACTIONS (7)
  - Adenoviral haemorrhagic cystitis [Unknown]
  - Off label use [Unknown]
  - Periorbital haematoma [Recovered/Resolved]
  - Epistaxis [Recovered/Resolved]
  - Acute myeloid leukaemia recurrent [Fatal]
  - Haemorrhage [Unknown]
  - Acute graft versus host disease [Unknown]

NARRATIVE: CASE EVENT DATE: 20190605
